FAERS Safety Report 12671593 (Version 2)
Quarter: 2016Q4

REPORT INFORMATION
  Report Type: Other
  Country: US (occurrence: US)
  Receive Date: 20160822
  Receipt Date: 20161017
  Transmission Date: 20170207
  Serious: Yes (Other)
  Sender: FDA-Public Use
  Company Number: US-LUPIN PHARMACEUTICALS INC.-2016-03717

PATIENT
  Age: 65 Year
  Sex: Male

DRUGS (1)
  1. NIACIN EXTENDED RELEASE [Suspect]
     Active Substance: NIACIN
     Indication: PRODUCT USED FOR UNKNOWN INDICATION
     Dosage: 2000 MG
     Route: 065

REACTIONS (3)
  - Thrombocytopenia [Unknown]
  - Anaemia macrocytic [Unknown]
  - Haemochromatosis [Unknown]
